FAERS Safety Report 14759077 (Version 1)
Quarter: 2018Q2

REPORT INFORMATION
  Report Type: Spontaneous
  Country: IT (occurrence: IT)
  Receive Date: 20180413
  Receipt Date: 20180413
  Transmission Date: 20180711
  Serious: Yes (Other)
  Sender: FDA-Public Use
  Company Number: IT-MYLANLABS-2018M1023007

PATIENT
  Age: 8 Year
  Sex: Male

DRUGS (1)
  1. INDOMETACIN [Suspect]
     Active Substance: INDOMETHACIN
     Indication: MUSCULOSKELETAL PAIN
     Dosage: 3 MG/KG, QD

REACTIONS (4)
  - Diplopia [Unknown]
  - Off label use [Recovered/Resolved]
  - Vertigo [Unknown]
  - Tinnitus [Unknown]
